FAERS Safety Report 25806614 (Version 1)
Quarter: 2025Q3

REPORT INFORMATION
  Report Type: Spontaneous
  Country: US (occurrence: US)
  Receive Date: 20250916
  Receipt Date: 20250916
  Transmission Date: 20251021
  Serious: Yes (Hospitalization)
  Sender: MYLAN
  Company Number: US-MYLANLABS-2025M1076644

PATIENT
  Age: 45 Year
  Sex: Male

DRUGS (3)
  1. ROPIVACAINE [Suspect]
     Active Substance: ROPIVACAINE
     Indication: Nerve block
  2. DEXMEDETOMIDINE [Concomitant]
     Active Substance: DEXMEDETOMIDINE
     Indication: Nerve block
  3. EPINEPHRINE [Concomitant]
     Active Substance: EPINEPHRINE
     Indication: Nerve block

REACTIONS (1)
  - Acute respiratory distress syndrome [Recovered/Resolved]
